FAERS Safety Report 23526644 (Version 4)
Quarter: 2024Q1

REPORT INFORMATION
  Report Type: Spontaneous
  Country: AT (occurrence: AT)
  Receive Date: 20240215
  Receipt Date: 20240221
  Transmission Date: 20240409
  Serious: Yes (Death, Life-Threatening, Hospitalization, Other)
  Sender: FDA-Public Use
  Company Number: AT-PFIZER INC-PV202400020405

PATIENT
  Age: 78 Year
  Sex: Male
  Weight: 85 kg

DRUGS (4)
  1. DALTEPARIN SODIUM [Suspect]
     Active Substance: DALTEPARIN SODIUM
     Indication: Thrombosis prophylaxis
     Dosage: 5000 IU, 2X/DAY
  2. DABIGATRAN [Suspect]
     Active Substance: DABIGATRAN
     Indication: Thrombosis prophylaxis
     Dosage: 110 MG, 2X/DAY
  3. DABIGATRAN [Suspect]
     Active Substance: DABIGATRAN
     Dosage: RESUMED
  4. ALPROSTADIL [Concomitant]
     Active Substance: ALPROSTADIL
     Dosage: 40 UG INFUSIONS

REACTIONS (2)
  - Basilar artery occlusion [Fatal]
  - Therapeutic product effect incomplete [Fatal]
